FAERS Safety Report 10086984 (Version 2)
Quarter: 2014Q2

REPORT INFORMATION
  Report Type: Report from Study
  Country: FR (occurrence: FR)
  Receive Date: 20140418
  Receipt Date: 20140423
  Transmission Date: 20141212
  Serious: Yes (Hospitalization)
  Sender: FDA-Public Use
  Company Number: FR-VERTEX PHARMACEUTICALS INC-2014-001981

PATIENT
  Age: 56 Year
  Sex: Male
  Weight: 78 kg

DRUGS (7)
  1. TELAPREVIR [Suspect]
     Indication: HEPATITIS C
     Dosage: 1125 MG, QD
     Dates: start: 20130429, end: 20130724
  2. COPEGUS [Suspect]
     Indication: HEPATITIS C
     Dosage: 800 MG, UNK
     Dates: start: 20130713, end: 20130823
  3. COPEGUS [Suspect]
     Dosage: 600 MG, UNK
     Dates: start: 20130429, end: 20130712
  4. PEGASYS [Suspect]
     Indication: HEPATITIS C
     Dates: start: 20130429, end: 20130823
  5. GLUCOPHAGE [Concomitant]
     Indication: TYPE 2 DIABETES MELLITUS
     Dosage: 850 MG, BID
     Dates: start: 2013
  6. AERIUS [Concomitant]
     Indication: RASH
     Dates: start: 20130429
  7. TRIATEC [Concomitant]
     Indication: HYPERTENSION
     Dates: start: 20080702

REACTIONS (9)
  - Haematoma [Unknown]
  - Rib fracture [Unknown]
  - Fall [Unknown]
  - Dizziness [Unknown]
  - Malaise [Recovered/Resolved with Sequelae]
  - White blood cell count decreased [Unknown]
  - Haemoglobin decreased [Recovered/Resolved]
  - Thrombocytopenia [Unknown]
  - Cough [Unknown]
